FAERS Safety Report 7465849-X (Version None)
Quarter: 2011Q1

REPORT INFORMATION
  Report Type: 
  Country: None (occurrence: None)
  Receive Date: 20110302
  Receipt Date: 20100917
  Transmission Date: 20110831
  Serious: Yes (Death, Hospitalization)
  Sender: FDA-Public Use
  Company Number: 163-21880-10080363

PATIENT
  Age: 57 Year
  Sex: Male

DRUGS (13)
  1. ACYCLOVIR [Concomitant]
  2. METOPROLOL TARTRATE [Concomitant]
  3. SINGULAIR [Concomitant]
  4. RAPAMUNE [Concomitant]
  5. DEXAMETHASONE [Concomitant]
  6. ZITHROMAX [Concomitant]
  7. VELCADE [Concomitant]
  8. REVLIMID [Suspect]
     Indication: MULTIPLE MYELOMA
     Dosage: 25-20MG, DAILY, PO, 10-25MG, DAILY IN 14-21 DAY CYCLES, PO, 25 MG, DAILY IN 21 DAY CYCLE, PO
     Route: 048
     Dates: start: 20100701, end: 20100812
  9. REVLIMID [Suspect]
     Indication: MULTIPLE MYELOMA
     Dosage: 25-20MG, DAILY, PO, 10-25MG, DAILY IN 14-21 DAY CYCLES, PO, 25 MG, DAILY IN 21 DAY CYCLE, PO
     Route: 048
     Dates: start: 20060801, end: 20070101
  10. REVLIMID [Suspect]
     Indication: MULTIPLE MYELOMA
     Dosage: 25-20MG, DAILY, PO, 10-25MG, DAILY IN 14-21 DAY CYCLES, PO, 25 MG, DAILY IN 21 DAY CYCLE, PO
     Route: 048
     Dates: start: 20090520, end: 20100101
  11. PREDNISONE [Concomitant]
  12. OMEPRAZOLE [Concomitant]
  13. BACTRIM [Concomitant]

REACTIONS (4)
  - PNEUMONIA VIRAL [None]
  - COUGH [None]
  - RESPIRATORY FAILURE [None]
  - PARAINFLUENZAE VIRUS INFECTION [None]
